FAERS Safety Report 5135387-8 (Version None)
Quarter: 2006Q4

REPORT INFORMATION
  Report Type: 
  Country: None (occurrence: None)
  Receive Date: 20061026
  Receipt Date: 20060907
  Transmission Date: 20070319
  Serious: Yes (Life-Threatening, Disabling)
  Sender: FDA-Public Use
  Company Number: US-BRISTOL-MYERS SQUIBB COMPANY-13501986

PATIENT
  Age: 53 Year
  Sex: Female
  Weight: 62 kg

DRUGS (6)
  1. ABILIFY [Suspect]
     Indication: BIPOLAR II DISORDER
     Dosage: DOSE VALUE:  5 TO 10 MG
     Route: 048
     Dates: start: 20050901
  2. ADDERALL 10 [Concomitant]
  3. EFFEXOR [Concomitant]
  4. CLONAZEPAM [Concomitant]
  5. SEROQUEL [Concomitant]
     Dosage: DOSE VALUE:  25 TO 50 MG
  6. OXYTROL [Concomitant]

REACTIONS (3)
  - DEMYELINATION [None]
  - FAECAL INCONTINENCE [None]
  - URINARY INCONTINENCE [None]
